FAERS Safety Report 5901143-3 (Version None)
Quarter: 2008Q3

REPORT INFORMATION
  Report Type: 
  Country: None (occurrence: None)
  Receive Date: 20080929
  Receipt Date: 20080923
  Transmission Date: 20090109
  Serious: Yes (Hospitalization)
  Sender: FDA-Public Use
  Company Number: PHHO2008FR03000

PATIENT
  Sex: Female
  Weight: 62 kg

DRUGS (4)
  1. ERL 080A ERL+TAB [Suspect]
     Indication: RENAL TRANSPLANT
     Dosage: 360 MG, BID
     Route: 048
     Dates: start: 20070909
  2. CORTANCYL [Concomitant]
     Dosage: UNK
     Dates: start: 20080118
  3. NEORAL [Concomitant]
     Dosage: UNK
     Dates: start: 20070909
  4. BACTRIM [Concomitant]

REACTIONS (2)
  - BRONCHITIS VIRAL [None]
  - DYSPNOEA [None]
